FAERS Safety Report 8047202-3 (Version None)
Quarter: 2012Q1

REPORT INFORMATION
  Report Type: 
  Country: None (occurrence: None)
  Receive Date: 20120116
  Receipt Date: 20120111
  Transmission Date: 20120608
  Serious: Yes (Other)
  Sender: FDA-Public Use
  Company Number: US-BAYER-2011-111727

PATIENT
  Age: 29 Year
  Sex: Female
  Weight: 75.737 kg

DRUGS (2)
  1. MIRENA [Suspect]
     Dosage: 20 MCG/24HR, CONT
     Route: 015
  2. MIRENA [Suspect]
     Indication: CONTRACEPTION
     Dosage: 20 MCG/24HR, CONT
     Route: 015
     Dates: start: 20111019, end: 20111019

REACTIONS (5)
  - DEVICE DISLOCATION [None]
  - POST PROCEDURAL DISCOMFORT [None]
  - PELVIC PAIN [None]
  - DEVICE DIFFICULT TO USE [None]
  - NO ADVERSE EVENT [None]
